FAERS Safety Report 7670137-2 (Version None)
Quarter: 2011Q3

REPORT INFORMATION
  Report Type: 
  Country: None (occurrence: None)
  Receive Date: 20110808
  Receipt Date: 20110726
  Transmission Date: 20111222
  Serious: Yes (Hospitalization, Other)
  Sender: FDA-Public Use
  Company Number: US-ACTELION-A-NJ2011-50666

PATIENT

DRUGS (22)
  1. TRACLEER [Suspect]
     Indication: PULMONARY ARTERIAL HYPERTENSION
     Dosage: 125 MG, BID
     Route: 048
  2. LASIX [Concomitant]
  3. BENADRYL [Concomitant]
  4. AZACTAM [Concomitant]
  5. FOLVITE [Concomitant]
  6. CAMPHOR W/MENTHOL [Concomitant]
  7. ATROPINE [Concomitant]
  8. NITROSTAT [Concomitant]
  9. CIPROFLOXACIN HCL [Concomitant]
  10. TYLENOL-500 [Concomitant]
  11. REGLAN [Concomitant]
  12. MULTIPLE VITAMIN [Concomitant]
  13. FLONASE [Concomitant]
  14. DURAGESIC-100 [Concomitant]
  15. TRACLEER [Suspect]
     Dosage: 62.5 MG, BID
     Route: 048
     Dates: start: 20100416
  16. VANCOMYCIN [Concomitant]
  17. VITAMIN D2 [Concomitant]
  18. ZOFRAN [Concomitant]
  19. HEPARIN [Concomitant]
  20. DILAUDID [Concomitant]
  21. OSCAL D [Concomitant]
  22. ASCORBIC ACID [Concomitant]

REACTIONS (8)
  - FATIGUE [None]
  - BLOOD BILIRUBIN INCREASED [None]
  - LIVER FUNCTION TEST ABNORMAL [None]
  - SICKLE CELL ANAEMIA WITH CRISIS [None]
  - SOMNOLENCE [None]
  - ASPARTATE AMINOTRANSFERASE INCREASED [None]
  - ALANINE AMINOTRANSFERASE INCREASED [None]
  - BLOOD ALKALINE PHOSPHATASE INCREASED [None]
